FAERS Safety Report 5443487-8 (Version None)
Quarter: 2007Q3

REPORT INFORMATION
  Report Type: 
  Country: None (occurrence: None)
  Receive Date: 20070905
  Receipt Date: 20070824
  Transmission Date: 20080115
  Serious: Yes (Death, Hospitalization)
  Sender: FDA-Public Use
  Company Number: DE-ROCHE-513221

PATIENT
  Age: 56 Year
  Sex: Male
  Weight: 77 kg

DRUGS (6)
  1. CAPECITABINE [Suspect]
     Indication: PANCREATIC CARCINOMA
     Dosage: ADMINISTERED DAYS 1-14 EVERY 21 DAYS, PER PROTOCOL
     Route: 048
     Dates: start: 20070713, end: 20070815
  2. ERLOTINIB [Suspect]
     Indication: PANCREATIC CARCINOMA
     Route: 065
     Dates: start: 20070713, end: 20070822
  3. PERENTEROL [Concomitant]
  4. ASPIRIN [Concomitant]
  5. PANTOPRAZOLE SODIUM [Concomitant]
     Dosage: REPORTED AS PANTOZOL 40
  6. DUROGESIC [Concomitant]
     Dosage: REPORTED AS DUROGESIC 50 MCG

REACTIONS (2)
  - DIARRHOEA [None]
  - ILEUS PARALYTIC [None]
